FAERS Safety Report 8389439 (Version 3)
Quarter: 2013Q2

REPORT INFORMATION
  Report Type: Report from Study
  Country: DE (occurrence: DE)
  Receive Date: 20120203
  Receipt Date: 20130617
  Transmission Date: 20140414
  Serious: Yes (Hospitalization, Other)
  Sender: FDA-Public Use
  Company Number: DE-ABBOTT-11P-062-0870699-00

PATIENT
  Age: 22 Year
  Sex: Male
  Weight: 55 kg

DRUGS (2)
  1. HUMIRA 40 MG/0.8 ML PEN [Suspect]
     Indication: CROHN^S DISEASE
     Route: 058
     Dates: start: 20100515, end: 20110810
  2. HUMIRA 40 MG/0.8 ML PEN [Suspect]
     Route: 058
     Dates: start: 20111007, end: 20120409

REACTIONS (8)
  - Enterocutaneous fistula [Unknown]
  - Ileus paralytic [Unknown]
  - Gastric atony [Unknown]
  - Abscess [Recovering/Resolving]
  - Abscess intestinal [Recovered/Resolved]
  - Abscess intestinal [Recovering/Resolving]
  - Hypokalaemia [Unknown]
  - Erythema [Unknown]
